FAERS Safety Report 5773571-0 (Version None)
Quarter: 2008Q2

REPORT INFORMATION
  Report Type: 
  Country: None (occurrence: None)
  Receive Date: 20080616
  Receipt Date: 20080609
  Transmission Date: 20081010
  Serious: Yes (Other)
  Sender: FDA-Public Use
  Company Number: US-BAYER-US-2007-040696

PATIENT
  Age: 25 Year
  Sex: Female
  Weight: 98 kg

DRUGS (2)
  1. MIRENA [Suspect]
     Indication: CONTRACEPTION
     Route: 015
     Dates: start: 20070824, end: 20080508
  2. VITAMIN TAB [Concomitant]

REACTIONS (6)
  - DEVICE BREAKAGE [None]
  - DRUG EXPOSURE DURING PREGNANCY [None]
  - FLANK PAIN [None]
  - GENITOURINARY TRACT INFECTION [None]
  - OVARIAN CYST [None]
  - PROCEDURAL PAIN [None]
